FAERS Safety Report 8391962-9 (Version None)
Quarter: 2012Q2

REPORT INFORMATION
  Report Type: 
  Country: None (occurrence: None)
  Receive Date: 20120529
  Receipt Date: 20120518
  Transmission Date: 20120825
  Serious: Yes (Hospitalization)
  Sender: FDA-Public Use
  Company Number: GR-GLAXOSMITHKLINE-B0804119A

PATIENT
  Age: 30 Year
  Sex: Male

DRUGS (1)
  1. PROPAFENONE HCL [Suspect]
     Indication: ATRIAL FIBRILLATION
     Dosage: 300MG PER DAY
     Route: 065

REACTIONS (1)
  - BRUGADA SYNDROME [None]
